FAERS Safety Report 13095407 (Version 1)
Quarter: 2017Q1

REPORT INFORMATION
  Report Type: Spontaneous
  Country: US (occurrence: US)
  Receive Date: 20170108
  Receipt Date: 20170108
  Transmission Date: 20170428
  Serious: No
  Sender: FDA-Public Use
  Company Number: US-BIOGEN-2017BI00338363

PATIENT
  Age: 33 Year
  Sex: Female

DRUGS (2)
  1. TECFIDERA [Suspect]
     Active Substance: DIMETHYL FUMARATE
     Indication: MULTIPLE SCLEROSIS
     Route: 065
     Dates: start: 20150918
  2. TECFIDERA [Suspect]
     Active Substance: DIMETHYL FUMARATE
     Route: 065
     Dates: start: 20160923

REACTIONS (2)
  - Drug dose omission [Recovered/Resolved]
  - Food poisoning [Recovered/Resolved]

NARRATIVE: CASE EVENT DATE: 20161230
